FAERS Safety Report 8173501-0 (Version None)
Quarter: 2012Q1

REPORT INFORMATION
  Report Type: 
  Country: None (occurrence: None)
  Receive Date: 20120227
  Receipt Date: 20120215
  Transmission Date: 20120608
  Serious: Yes (Hospitalization)
  Sender: FDA-Public Use
  Company Number: 2012SP008541

PATIENT
  Age: 58 Year
  Sex: Male

DRUGS (9)
  1. TEMODAR [Suspect]
     Indication: GLIOBLASTOMA MULTIFORME
     Dosage: 300 MG;IV ; 300 MG;IV
     Route: 042
     Dates: start: 20111003
  2. TEMODAR [Suspect]
     Indication: GLIOBLASTOMA MULTIFORME
     Dosage: 300 MG;IV ; 300 MG;IV
     Route: 042
     Dates: start: 20110707, end: 20110822
  3. DIPHENHYDRAMINE HCL [Concomitant]
  4. LEVETIRACETAM [Concomitant]
  5. SILDENAFIL CITRATE [Concomitant]
  6. ACEAMINOPHEN [Concomitant]
  7. OMEPRAZOLE [Concomitant]
  8. GRANISETRON [Concomitant]
  9. VITAMIN B /00056102/ [Concomitant]

REACTIONS (4)
  - SYNCOPE [None]
  - SINUS BRADYCARDIA [None]
  - POST PROCEDURAL COMPLICATION [None]
  - CONSTIPATION [None]
